FAERS Safety Report 11368525 (Version 1)
Quarter: 2015Q3

REPORT INFORMATION
  Report Type: Spontaneous
  Country: US (occurrence: US)
  Receive Date: 20150812
  Receipt Date: 20150812
  Transmission Date: 20151125
  Serious: Yes (Other)
  Sender: FDA-Public Use
  Company Number: US-ROCHE-1619429

PATIENT
  Sex: Female

DRUGS (1)
  1. PEGASYS [Suspect]
     Active Substance: PEGINTERFERON ALFA-2A
     Indication: HEPATITIS C
     Route: 065
     Dates: start: 201112, end: 2012

REACTIONS (10)
  - Liver disorder [Unknown]
  - Diabetes mellitus [Unknown]
  - Colitis [Unknown]
  - Asthenia [Unknown]
  - Diarrhoea [Unknown]
  - Alopecia [Unknown]
  - Depression [Unknown]
  - Conversion disorder [Unknown]
  - Fatigue [Unknown]
  - Weight decreased [Unknown]
